FAERS Safety Report 4477776-0 (Version None)
Quarter: 2004Q4

REPORT INFORMATION
  Report Type: 
  Country: None (occurrence: None)
  Receive Date: 20041014
  Receipt Date: 20040914
  Transmission Date: 20050328
  Serious: Yes (Hospitalization)
  Sender: FDA-Public Use
  Company Number: US-JNJFOC-20040904513

PATIENT
  Age: 80 Year
  Sex: Male

DRUGS (5)
  1. MOTRIN IB [Suspect]
     Indication: ABDOMINAL PAIN
     Dosage: 400 MG, 1 IN 1 DAY, ORAL
     Route: 048
     Dates: start: 20040801, end: 20040801
  2. MOTRIN IB [Suspect]
     Indication: GOUT
     Dosage: 400 MG, 1 IN 1 DAY, ORAL
     Route: 048
     Dates: start: 20040801, end: 20040801
  3. MOTRIN IB [Suspect]
     Indication: PAIN IN EXTREMITY
     Dosage: 400 MG, 1 IN 1 DAY, ORAL
     Route: 048
     Dates: start: 20040801, end: 20040801
  4. ALLOPURINOL [Concomitant]
  5. METFORMIN HCL [Concomitant]

REACTIONS (7)
  - BLOOD GLUCOSE INCREASED [None]
  - BLOOD PRESSURE DECREASED [None]
  - BLOOD URINE [None]
  - DEHYDRATION [None]
  - PYREXIA [None]
  - RENAL DISORDER [None]
  - WEIGHT DECREASED [None]
